FAERS Safety Report 24909930 (Version 2)
Quarter: 2025Q1

REPORT INFORMATION
  Report Type: Spontaneous
  Country: FR (occurrence: FR)
  Receive Date: 20250131
  Receipt Date: 20250225
  Transmission Date: 20250409
  Serious: No
  Sender: ASTELLAS
  Company Number: FR-ASTELLAS-2025-AER-005398

PATIENT
  Age: 61 Year
  Sex: Female

DRUGS (12)
  1. TACROLIMUS [Suspect]
     Active Substance: TACROLIMUS
     Indication: Liver transplant
     Route: 048
     Dates: start: 202406
  2. TACROLIMUS [Suspect]
     Active Substance: TACROLIMUS
     Indication: Renal transplant
     Route: 048
  3. TACROLIMUS [Suspect]
     Active Substance: TACROLIMUS
     Route: 048
  4. TACROLIMUS [Suspect]
     Active Substance: TACROLIMUS
     Route: 048
  5. PROGRAF [Suspect]
     Active Substance: TACROLIMUS
     Indication: Liver transplant
     Route: 065
  6. PROGRAF [Suspect]
     Active Substance: TACROLIMUS
     Indication: Renal transplant
  7. PREDNISONE [Concomitant]
     Active Substance: PREDNISONE
     Indication: Product used for unknown indication
     Route: 065
  8. TRIMEBUTINE [Concomitant]
     Active Substance: TRIMEBUTINE
     Indication: Product used for unknown indication
     Route: 065
  9. MAGNESIUM [Concomitant]
     Active Substance: MAGNESIUM
     Indication: Muscle spasms
     Route: 065
  10. MAGNESIUM [Concomitant]
     Active Substance: MAGNESIUM
     Indication: Muscle spasms
  11. SODIUM BICARBONATE [Concomitant]
     Active Substance: SODIUM BICARBONATE
     Indication: Product used for unknown indication
     Route: 065
  12. DIOSMIN\HESPERIDIN [Concomitant]
     Active Substance: DIOSMIN\HESPERIDIN
     Indication: Haemorrhoids
     Route: 065

REACTIONS (10)
  - Paraesthesia [Recovering/Resolving]
  - Tinnitus [Unknown]
  - Telangiectasia [Unknown]
  - Conjunctival telangiectasia [Unknown]
  - Contusion [Unknown]
  - Musculoskeletal disorder [Unknown]
  - Immunosuppressant drug level increased [Unknown]
  - Weight increased [Unknown]
  - Incorrect dose administered [Unknown]
  - Product use complaint [Unknown]
